FAERS Safety Report 15888590 (Version 2)
Quarter: 2019Q1

REPORT INFORMATION
  Report Type: Report from Study
  Country: BR (occurrence: BR)
  Receive Date: 20190130
  Receipt Date: 20190130
  Transmission Date: 20190417
  Serious: Yes (Other)
  Sender: FDA-Public Use
  Company Number: PHHY2019BR019077

PATIENT
  Sex: Female
  Weight: 83 kg

DRUGS (3)
  1. ACLASTA [Suspect]
     Active Substance: ZOLEDRONIC ACID
     Indication: OSTEOPENIA
     Dosage: 1 DF (5 MG/100 ML), Q12MO
     Route: 042
     Dates: start: 201707
  2. ANASTROZOLE. [Suspect]
     Active Substance: ANASTROZOLE
     Indication: PRODUCT USED FOR UNKNOWN INDICATION
     Route: 065
  3. VITAMIN D [Concomitant]
     Active Substance: CHOLECALCIFEROL
     Indication: PRODUCT USED FOR UNKNOWN INDICATION
     Dosage: (50000, AS REPORTED)
     Route: 065

REACTIONS (8)
  - Tendonitis [Unknown]
  - Breast neoplasm [Unknown]
  - Headache [Unknown]
  - General physical health deterioration [Unknown]
  - Mass [Unknown]
  - Blood calcium decreased [Unknown]
  - Pain [Not Recovered/Not Resolved]
  - Breast discomfort [Not Recovered/Not Resolved]
